FAERS Safety Report 6441609-3 (Version None)
Quarter: 2009Q4

REPORT INFORMATION
  Report Type: 
  Country: None (occurrence: None)
  Receive Date: 20091112
  Receipt Date: 20091028
  Transmission Date: 20100525
  Serious: Yes (Death, Other)
  Sender: FDA-Public Use
  Company Number: 2009BI035151

PATIENT

DRUGS (2)
  1. ZEVALIN [Suspect]
     Indication: MANTLE CELL LYMPHOMA
     Dosage: 185 MBQ;1X;IV
     Route: 042
  2. RITUXIMAB [Concomitant]

REACTIONS (1)
  - MYELODYSPLASTIC SYNDROME [None]
